FAERS Safety Report 4293214-5 (Version None)
Quarter: 2004Q1

REPORT INFORMATION
  Report Type: 
  Country: None (occurrence: None)
  Receive Date: 20040210
  Receipt Date: 20040130
  Transmission Date: 20041129
  Serious: Yes (Other)
  Sender: FDA-Public Use
  Company Number: HQWYE432322OCT03

PATIENT
  Age: 30 Year
  Sex: Female
  Weight: 62.2 kg

DRUGS (1)
  1. EFFEXOR [Suspect]
     Indication: DEPRESSION
     Dosage: 3.75 MG 1X PER 1 DAY ORAL
     Route: 048
     Dates: start: 20030101, end: 20030701

REACTIONS (8)
  - AMNESIA [None]
  - CLOSED HEAD INJURY [None]
  - CONCUSSION [None]
  - DYSARTHRIA [None]
  - DYSPHEMIA [None]
  - FALL [None]
  - TINNITUS [None]
  - VERTIGO [None]
